FAERS Safety Report 9791041 (Version 2)
Quarter: 2014Q1

REPORT INFORMATION
  Report Type: Spontaneous
  Country: US (occurrence: US)
  Receive Date: 20131231
  Receipt Date: 20140122
  Transmission Date: 20141002
  Serious: No
  Sender: FDA-Public Use
  Company Number: US-BIOGENIDEC-2013BI060142

PATIENT
  Age: 68 Year
  Sex: Female

DRUGS (6)
  1. TECFIDERA [Suspect]
     Indication: MULTIPLE SCLEROSIS
     Route: 048
     Dates: start: 201306
  2. LISINOPRIL [Concomitant]
  3. LIPITOR [Concomitant]
  4. VITAMIN D3 [Concomitant]
  5. DITROPAN [Concomitant]
  6. CRANBERRY CAPS [Concomitant]

REACTIONS (6)
  - Muscle spasms [Recovered/Resolved]
  - Visual impairment [Recovered/Resolved]
  - Cough [Not Recovered/Not Resolved]
  - Sneezing [Not Recovered/Not Resolved]
  - Rash macular [Recovered/Resolved]
  - Pruritus [Recovered/Resolved]
